FAERS Safety Report 7058015-3 (Version None)
Quarter: 2010Q4

REPORT INFORMATION
  Report Type: 
  Country: None (occurrence: None)
  Receive Date: 20101022
  Receipt Date: 20101014
  Transmission Date: 20110411
  Serious: Yes (Hospitalization)
  Sender: FDA-Public Use
  Company Number: PHHO2010US09975

PATIENT
  Age: 53 Year
  Sex: Female
  Weight: 53.4 kg

DRUGS (12)
  1. AFINITOR [Suspect]
     Indication: ACUTE MYELOID LEUKAEMIA
     Dosage: 5 MG DAILY
     Route: 048
     Dates: start: 20100615
  2. AFINITOR [Suspect]
     Dosage: 5 MG DAILY
     Route: 048
     Dates: start: 20100622, end: 20100630
  3. AFINITOR [Suspect]
     Dosage: 5 MG DAILY
     Route: 048
     Dates: start: 20100701, end: 20100702
  4. CGP 41251 T30685+CAPS [Suspect]
     Indication: ACUTE MYELOID LEUKAEMIA
     Dosage: 50 MG, BID
     Route: 048
     Dates: start: 20100616, end: 20100630
  5. CGP 41251 T30685+CAPS [Suspect]
     Dosage: 50 MG, BID
     Dates: start: 20100701, end: 20100702
  6. ALLOPURINOL [Concomitant]
  7. ARIXTRA [Concomitant]
  8. ATIVAN [Concomitant]
  9. CIPROFLOXACIN [Concomitant]
  10. COMPAZINE [Concomitant]
  11. PRILOSEC [Concomitant]
  12. SENOKOT [Concomitant]

REACTIONS (4)
  - BODY TEMPERATURE INCREASED [None]
  - LOCAL SWELLING [None]
  - MUCOSAL INFLAMMATION [None]
  - URINARY TRACT INFECTION [None]
